FAERS Safety Report 24259408 (Version 1)
Quarter: 2024Q3

REPORT INFORMATION
  Report Type: Spontaneous
  Country: US (occurrence: US)
  Receive Date: 20240828
  Receipt Date: 20240828
  Transmission Date: 20241017
  Serious: Yes (Hospitalization, Other)
  Sender: AMGEN
  Company Number: US-AMGEN-USASP2024167715

PATIENT
  Sex: Female

DRUGS (10)
  1. PREDNISONE [Suspect]
     Active Substance: PREDNISONE
     Indication: Uveitis
     Dosage: UNK
     Route: 065
  2. MYCOPHENOLIC ACID [Concomitant]
     Active Substance: MYCOPHENOLIC ACID
     Indication: Uveitis
     Dosage: UNK
  3. METHOTREXATE [Concomitant]
     Active Substance: METHOTREXATE
     Indication: Uveitis
     Dosage: UNK
  4. PREDNISOLONE ACETATE [Concomitant]
     Active Substance: PREDNISOLONE ACETATE
     Indication: Uveitis
     Dosage: UNK UNK, QD
  5. METHYLPREDNISOLONE [Concomitant]
     Active Substance: METHYLPREDNISOLONE
     Indication: Uveitis
     Dosage: 1 GRAM
  6. RUXIENCE [Concomitant]
     Active Substance: RITUXIMAB-PVVR
     Indication: Uveitis
     Dosage: UNK UNK, QMO (1000 MG IN NACL)
  7. OZURDEX [Concomitant]
     Active Substance: DEXAMETHASONE
     Indication: Uveitis
     Dosage: 0.7 MILLIGRAM
  8. OZURDEX [Concomitant]
     Active Substance: DEXAMETHASONE
     Dosage: 0.7 MILLIGRAM
     Route: 031
  9. RETISERT [Concomitant]
     Active Substance: FLUOCINOLONE ACETONIDE
     Indication: Uveitis
     Dosage: 0.59 MILLIGRAM
     Route: 065
  10. RETISERT [Concomitant]
     Active Substance: FLUOCINOLONE ACETONIDE
     Dosage: 0.59 MILLIGRAM (SURGICAL)

REACTIONS (4)
  - Multiple sclerosis [Unknown]
  - Uveitis [Unknown]
  - Blindness [Unknown]
  - Drug ineffective [Unknown]
